FAERS Safety Report 20016352 (Version 1)
Quarter: 2021Q4

REPORT INFORMATION
  Report Type: Spontaneous
  Country: US (occurrence: None)
  Receive Date: 20211103
  Receipt Date: 20211103
  Transmission Date: 20220303
  Serious: Yes (Hospitalization)
  Sender: FDA-Public Use
  Company Number: None

PATIENT
  Age: 73 Year
  Sex: Female
  Weight: 106.6 kg

DRUGS (3)
  1. TAXOTERE [Suspect]
     Active Substance: DOCETAXEL
     Dates: end: 20211013
  2. PERTUZUMAB [Concomitant]
     Active Substance: PERTUZUMAB
     Dates: end: 20211013
  3. HERCEPTIN [Concomitant]
     Active Substance: TRASTUZUMAB
     Dates: end: 20211013

REACTIONS (5)
  - Haematocrit decreased [None]
  - Haemoglobin decreased [None]
  - Epistaxis [None]
  - Melaena [None]
  - Therapy interrupted [None]

NARRATIVE: CASE EVENT DATE: 20211028
